FAERS Safety Report 5469623-5 (Version None)
Quarter: 2007Q3

REPORT INFORMATION
  Report Type: 
  Country: None (occurrence: None)
  Receive Date: 20070925
  Receipt Date: 20070925
  Transmission Date: 20080115
  Serious: Yes (Life-Threatening)
  Sender: FDA-Public Use
  Company Number: None

PATIENT
  Age: 33 Year
  Sex: Female
  Weight: 63.5036 kg

DRUGS (1)
  1. CHANTIX [Suspect]
     Indication: SMOKING CESSATION THERAPY
     Dosage: 1 MG TWICE A DAY PO
     Route: 048
     Dates: start: 20070808, end: 20070905

REACTIONS (8)
  - ANGER [None]
  - ANHEDONIA [None]
  - ANXIETY [None]
  - CRYING [None]
  - DEPRESSION [None]
  - JOB DISSATISFACTION [None]
  - MENTAL DISORDER [None]
  - SUICIDAL IDEATION [None]
